FAERS Safety Report 15290065 (Version 2)
Quarter: 2018Q4

REPORT INFORMATION
  Report Type: Report from Study
  Country: US (occurrence: US)
  Receive Date: 20180817
  Receipt Date: 20181031
  Transmission Date: 20190204
  Serious: Yes (Hospitalization, Other)
  Sender: FDA-Public Use
  Company Number: PHHY2017US197566

PATIENT
  Age: 13 Year
  Sex: Male
  Weight: 46.7 kg

DRUGS (78)
  1. CHOLECALCIFEROL [Concomitant]
     Active Substance: CHOLECALCIFEROL
     Dosage: 50000 IU, QD
     Route: 048
     Dates: start: 20180703, end: 20180710
  2. AZITHROMYCIN ANHYDROUS. [Concomitant]
     Active Substance: AZITHROMYCIN ANHYDROUS
     Indication: PSEUDOMONAS INFECTION
     Dosage: 250 MG, TIW
     Route: 048
     Dates: start: 20170227, end: 20180104
  3. PREDNISONE. [Concomitant]
     Active Substance: PREDNISONE
     Dosage: 45 MG, QD
     Route: 048
     Dates: start: 20171228, end: 20180105
  4. PREDNISONE. [Concomitant]
     Active Substance: PREDNISONE
     Dosage: 40 MG, QD (30 MG FOR DAYS, DAILY AND 10 MG EVERY OTHER DAY FOR 7 DAYS)
     Route: 048
     Dates: start: 20180713
  5. ZOSYN [Concomitant]
     Active Substance: PIPERACILLIN SODIUM\TAZOBACTAM SODIUM
     Dosage: 4 DF, QD (4000 MG)
     Route: 042
     Dates: start: 20171229, end: 20180104
  6. ZOSYN [Concomitant]
     Active Substance: PIPERACILLIN SODIUM\TAZOBACTAM SODIUM
     Dosage: 2 DF, QD (4000MG)
     Route: 042
     Dates: start: 20180105, end: 20180105
  7. SODIUM CHLORIDE. [Concomitant]
     Active Substance: SODIUM CHLORIDE
     Indication: FLUID REPLACEMENT
     Dosage: 200 ML,
     Route: 042
     Dates: start: 20171226, end: 20171228
  8. SODIUM CHLORIDE. [Concomitant]
     Active Substance: SODIUM CHLORIDE
     Dosage: 100 ML, UNK
     Route: 042
     Dates: start: 20171229, end: 20171229
  9. SODIUM CHLORIDE. [Concomitant]
     Active Substance: SODIUM CHLORIDE
     Dosage: 100 ML, UNK
     Route: 042
     Dates: start: 20171230, end: 20171230
  10. SODIUM CHLORIDE. [Concomitant]
     Active Substance: SODIUM CHLORIDE
     Dosage: 100 ML, UNK
     Route: 042
     Dates: start: 20180103, end: 20180104
  11. SODIUM CHLORIDE. [Concomitant]
     Active Substance: SODIUM CHLORIDE
     Dosage: 4 ML, QID
     Route: 055
     Dates: start: 20171228, end: 20180104
  12. SODIUM CHLORIDE. [Concomitant]
     Active Substance: SODIUM CHLORIDE
     Dosage: 4 ML, QD
     Route: 055
     Dates: start: 20180627, end: 20180627
  13. INSULIN GLARGINE [Concomitant]
     Active Substance: INSULIN GLARGINE
     Dosage: 11 U, QHS
     Route: 058
     Dates: start: 20180105, end: 20180105
  14. ACTIGALL [Concomitant]
     Active Substance: URSODIOL
     Indication: LIVER FUNCTION TEST INCREASED
     Dosage: UNK
     Route: 065
     Dates: start: 20160727
  15. TOBI [Suspect]
     Active Substance: TOBRAMYCIN
     Indication: CYSTIC FIBROSIS
     Dosage: 300 MG, BID
     Route: 055
     Dates: start: 20170501, end: 20170531
  16. CHOLECALCIFEROL [Concomitant]
     Active Substance: CHOLECALCIFEROL
     Dosage: 10000 IU, QD
     Route: 048
     Dates: start: 20180629, end: 20180701
  17. SODIUM CHLORIDE. [Concomitant]
     Active Substance: SODIUM CHLORIDE
     Dosage: 3 ML, HRLY
     Route: 042
     Dates: start: 20180101, end: 20180101
  18. SODIUM CHLORIDE. [Concomitant]
     Active Substance: SODIUM CHLORIDE
     Dosage: 100 ML, UNK
     Route: 042
     Dates: start: 20180101, end: 20180101
  19. SODIUM CHLORIDE. [Concomitant]
     Active Substance: SODIUM CHLORIDE
     Dosage: 3 ML, HRLY
     Route: 042
     Dates: start: 20180102, end: 20180102
  20. SODIUM CHLORIDE. [Concomitant]
     Active Substance: SODIUM CHLORIDE
     Dosage: 100 ML, PRN (5-100 ML)
     Route: 042
     Dates: start: 20180702, end: 20180713
  21. SODIUM CHLORIDE. [Concomitant]
     Active Substance: SODIUM CHLORIDE
     Dosage: 4 ML, QID
     Route: 055
     Dates: start: 20180713, end: 20180713
  22. URSODIOL. [Concomitant]
     Active Substance: URSODIOL
     Indication: LIVER FUNCTION TEST INCREASED
     Dosage: 300 MG, BID
     Route: 048
     Dates: start: 20180628, end: 20180713
  23. PULMOZYME [Concomitant]
     Active Substance: DORNASE ALFA
     Indication: CYSTIC FIBROSIS LUNG
     Dosage: 2.5 MG, QD
     Route: 055
     Dates: start: 20151104
  24. PREVACID [Concomitant]
     Active Substance: LANSOPRAZOLE
     Indication: GASTROOESOPHAGEAL REFLUX DISEASE
     Dosage: 30 MG, QD
     Route: 048
     Dates: start: 20160727
  25. AQUADEKS [Concomitant]
     Active Substance: MINERALS\VITAMINS
     Indication: SUPPLEMENTATION THERAPY
     Dosage: 1 DF, QD
     Route: 048
     Dates: start: 20150617, end: 20180124
  26. TOBRAMYCIN. [Concomitant]
     Active Substance: TOBRAMYCIN
     Dosage: 500 MG, QD
     Route: 042
     Dates: start: 20171228, end: 20180108
  27. ACETAMINOPHEN. [Concomitant]
     Active Substance: ACETAMINOPHEN
     Dosage: 1 DF, UNK
     Route: 048
     Dates: start: 20180101, end: 20180101
  28. VORICONAZOLE. [Concomitant]
     Active Substance: VORICONAZOLE
     Dosage: 200 MG, QD
     Route: 048
     Dates: start: 20180105, end: 20180105
  29. LANSOPRAZOLE. [Concomitant]
     Active Substance: LANSOPRAZOLE
     Indication: GASTROINTESTINAL DISORDER
     Dosage: 30 MG, QD
     Route: 048
     Dates: start: 20180628
  30. ALBUTEROL. [Concomitant]
     Active Substance: ALBUTEROL
     Indication: CYSTIC FIBROSIS LUNG
     Dosage: 2.5 MG, BID
     Route: 055
     Dates: start: 20170412, end: 20171226
  31. ALBUTEROL. [Concomitant]
     Active Substance: ALBUTEROL
     Dosage: 2.5 MG, QID
     Route: 055
     Dates: start: 20171227, end: 20180104
  32. ALBUTEROL. [Concomitant]
     Active Substance: ALBUTEROL
     Dosage: 3 ML, BID
     Route: 055
     Dates: start: 20180713
  33. TOBRAMYCIN. [Concomitant]
     Active Substance: TOBRAMYCIN
     Indication: INFECTIVE PULMONARY EXACERBATION OF CYSTIC FIBROSIS
     Dosage: 400 MG, QD
     Route: 042
     Dates: start: 20170920, end: 20170924
  34. ZOSYN [Concomitant]
     Active Substance: PIPERACILLIN SODIUM\TAZOBACTAM SODIUM
     Dosage: 4000 MG, UNK
     Route: 042
     Dates: start: 20171227, end: 20171227
  35. ZOSYN [Concomitant]
     Active Substance: PIPERACILLIN SODIUM\TAZOBACTAM SODIUM
     Dosage: 5 DF, QD (4000 MG)
     Route: 042
  36. VORICONAZOLE. [Concomitant]
     Active Substance: VORICONAZOLE
     Indication: INFECTION
     Dosage: 3 DF, QD
     Route: 048
     Dates: start: 20171228, end: 20171228
  37. VORICONAZOLE. [Concomitant]
     Active Substance: VORICONAZOLE
     Dosage: 200 MG, BID
     Route: 048
     Dates: start: 20171229, end: 20180104
  38. TOBI [Concomitant]
     Active Substance: TOBRAMYCIN
     Indication: PSEUDOMONAS INFECTION
     Dosage: UNK
     Route: 065
     Dates: start: 20170301, end: 20170531
  39. TOBI [Suspect]
     Active Substance: TOBRAMYCIN
     Indication: PSEUDOMONAS INFECTION
     Dosage: 300 MG, BID
     Route: 055
     Dates: start: 20171101, end: 20171128
  40. TOBI [Suspect]
     Active Substance: TOBRAMYCIN
     Dosage: 300 MG, BID
     Route: 055
     Dates: start: 20180601, end: 20180627
  41. AZITHROMYCIN ANHYDROUS. [Concomitant]
     Active Substance: AZITHROMYCIN ANHYDROUS
     Dosage: 500 MG, TIW
     Route: 048
     Dates: start: 20180105
  42. ALBUTEROL. [Concomitant]
     Active Substance: ALBUTEROL
     Dosage: 2.5 MG, BID
     Route: 055
     Dates: start: 20180105
  43. ITRACONAZOLE. [Concomitant]
     Active Substance: ITRACONAZOLE
     Dosage: 200 MG, QD
     Route: 048
     Dates: start: 20180117
  44. PREDNISONE. [Concomitant]
     Active Substance: PREDNISONE
     Dosage: 20 MG, (3 TAB WITH 1 OD, 2 TAB WITH 1 OD, 1 TAB WITH OD)
     Route: 048
     Dates: start: 20170719, end: 20170816
  45. PREDNISONE. [Concomitant]
     Active Substance: PREDNISONE
     Dosage: 10 MG, QD
     Route: 048
     Dates: start: 20170816
  46. ACETAMINOPHEN. [Concomitant]
     Active Substance: ACETAMINOPHEN
     Indication: PAIN
     Dosage: 2 DF, UNK
     Route: 048
     Dates: start: 20171228, end: 20171228
  47. CHOLECALCIFEROL [Concomitant]
     Active Substance: CHOLECALCIFEROL
     Dosage: 10000 IU, QD
     Route: 048
     Dates: start: 20180713
  48. HYPERTONIC SALINE SOLUTION [Concomitant]
     Active Substance: SODIUM CHLORIDE
     Indication: CYSTIC FIBROSIS LUNG
     Dosage: 4 ML, BID
     Route: 055
     Dates: start: 20091011
  49. ZITHROMAX [Concomitant]
     Active Substance: AZITHROMYCIN DIHYDRATE
     Indication: COUGH
     Dosage: 250 MG, UNK
     Route: 048
     Dates: start: 20170531, end: 20170605
  50. PREDNISONE. [Concomitant]
     Active Substance: PREDNISONE
     Dosage: 60 MG, QD
     Route: 048
     Dates: start: 20180628, end: 20180713
  51. TOBRAMYCIN. [Concomitant]
     Active Substance: TOBRAMYCIN
     Indication: PSEUDOMONAS INFECTION
     Dosage: 440 MG, QD
     Route: 042
     Dates: start: 20170924, end: 20170927
  52. ZOSYN [Concomitant]
     Active Substance: PIPERACILLIN SODIUM\TAZOBACTAM SODIUM
     Indication: INFECTIVE PULMONARY EXACERBATION OF CYSTIC FIBROSIS
     Dosage: 4000 MG, Q6H
     Route: 042
     Dates: start: 20170925, end: 20170927
  53. LACTATED RINGERS SOLUTION [Concomitant]
     Active Substance: CALCIUM CHLORIDE\POTASSIUM CHLORIDE\SODIUM CHLORIDE\SODIUM LACTATE
     Indication: FLUID IMBALANCE
     Dosage: 200 ML
     Route: 042
     Dates: start: 20171227, end: 20171227
  54. SODIUM CHLORIDE. [Concomitant]
     Active Substance: SODIUM CHLORIDE
     Dosage: 2 DF, QD (4 ML)
     Route: 055
     Dates: start: 20171227, end: 20171227
  55. SODIUM CHLORIDE. [Concomitant]
     Active Substance: SODIUM CHLORIDE
     Dosage: 2 DF, QD (4 ML)
     Route: 055
     Dates: start: 20180105, end: 20180105
  56. SODIUM CHLORIDE. [Concomitant]
     Active Substance: SODIUM CHLORIDE
     Dosage: 4 ML, QID
     Route: 055
     Dates: start: 20180628, end: 20180712
  57. CHOLECALCIFEROL [Concomitant]
     Active Substance: CHOLECALCIFEROL
     Indication: VITAMIN D DEFICIENCY
     Dosage: 1 DF, QD
     Route: 048
     Dates: start: 20170517, end: 20171228
  58. CHOLECALCIFEROL [Concomitant]
     Active Substance: CHOLECALCIFEROL
     Dosage: 50000 U, TID
     Route: 048
     Dates: start: 20171229, end: 20171230
  59. ITRACONAZOLE. [Concomitant]
     Active Substance: ITRACONAZOLE
     Indication: BRONCHOPULMONARY ASPERGILLOSIS ALLERGIC
     Dosage: 200 MG, QD
     Route: 048
     Dates: start: 20170223, end: 20170601
  60. PREDNISONE. [Concomitant]
     Active Substance: PREDNISONE
     Dosage: 40 MG, QD
     Route: 048
     Dates: start: 20180117, end: 20180628
  61. ACETAMINOPHEN. [Concomitant]
     Active Substance: ACETAMINOPHEN
     Indication: PYREXIA
     Dosage: 650 MG
     Route: 048
     Dates: start: 20171227, end: 20171227
  62. INSULIN GLARGINE [Concomitant]
     Active Substance: INSULIN GLARGINE
     Indication: CYSTIC FIBROSIS RELATED DIABETES
     Dosage: 9 U, QD
     Route: 058
     Dates: start: 20180101, end: 20180104
  63. CHOLECALCIFEROL [Concomitant]
     Active Substance: CHOLECALCIFEROL
     Dosage: 10000 U, QD
     Route: 048
     Dates: start: 20171231
  64. ALBUTEROL. [Concomitant]
     Active Substance: ALBUTEROL
     Dosage: 3 ML, QID
     Route: 055
     Dates: start: 20180627, end: 20180702
  65. ALBUTEROL. [Concomitant]
     Active Substance: ALBUTEROL
     Dosage: 4 DF, QID (4 PUFFS)
     Route: 055
     Dates: start: 20180702, end: 20180712
  66. GLUCAGON. [Concomitant]
     Active Substance: GLUCAGON
     Indication: BLOOD GLUCOSE DECREASED
     Dosage: 1 MG, PRN
     Route: 065
     Dates: start: 20090202
  67. CREON [Concomitant]
     Active Substance: PANCRELIPASE AMYLASE\PANCRELIPASE LIPASE\PANCRELIPASE PROTEASE
     Indication: PANCREATIC FAILURE
     Dosage: 24 OT, QD (5 W MEALS, 2 W SNACK)
     Route: 048
     Dates: start: 20151125
  68. PREDNISONE. [Concomitant]
     Active Substance: PREDNISONE
     Indication: BRONCHOPULMONARY ASPERGILLOSIS ALLERGIC
     Dosage: 20 MG, (3 TAB WITH 1 OD, 2 TAB WITH 1 OD, 1 TAB WITH OD)
     Route: 048
     Dates: start: 20170601, end: 20170630
  69. TOBRAMYCIN. [Concomitant]
     Active Substance: TOBRAMYCIN
     Dosage: 440 MG, QD
     Route: 042
     Dates: start: 20171227, end: 20171227
  70. ZOSYN [Concomitant]
     Active Substance: PIPERACILLIN SODIUM\TAZOBACTAM SODIUM
     Dosage: 4500 MG, Q6H
     Route: 042
     Dates: start: 20170927, end: 20170928
  71. SODIUM CHLORIDE. [Concomitant]
     Active Substance: SODIUM CHLORIDE
     Indication: INFECTIVE PULMONARY EXACERBATION OF CYSTIC FIBROSIS
     Dosage: 3 ML, HRLY
     Route: 042
     Dates: start: 20171229, end: 20171229
  72. SODIUM CHLORIDE. [Concomitant]
     Active Substance: SODIUM CHLORIDE
     Dosage: 3 ML, HRLY
     Route: 042
     Dates: start: 20171230, end: 20171230
  73. SODIUM CHLORIDE. [Concomitant]
     Active Substance: SODIUM CHLORIDE
     Dosage: 3 ML, HRLY
     Route: 042
     Dates: start: 20171231, end: 20171231
  74. SODIUM CHLORIDE. [Concomitant]
     Active Substance: SODIUM CHLORIDE
     Dosage: 100 ML, UNK
     Route: 042
     Dates: start: 20171231, end: 20171231
  75. ACETAMINOPHEN. [Concomitant]
     Active Substance: ACETAMINOPHEN
     Dosage: 325 MG, PRN
     Route: 048
     Dates: start: 20180628, end: 20180705
  76. INSULIN GLARGINE [Concomitant]
     Active Substance: INSULIN GLARGINE
     Indication: BLOOD GLUCOSE DECREASED
     Dosage: 7 U, QD
     Route: 058
     Dates: start: 20171231, end: 20171231
  77. INSULIN ASPART [Concomitant]
     Active Substance: INSULIN ASPART
     Indication: CYSTIC FIBROSIS RELATED DIABETES
     Dosage: 1 U, WITH MEALS
     Route: 058
     Dates: start: 20180104
  78. PROPOFOL. [Concomitant]
     Active Substance: PROPOFOL
     Indication: MEDICAL PROCEDURE
     Dosage: 60 MG, (3 DOSES)
     Route: 042
     Dates: start: 20180628, end: 20180628

REACTIONS (16)
  - Infective pulmonary exacerbation of cystic fibrosis [Recovered/Resolved]
  - Cough [Unknown]
  - Infective pulmonary exacerbation of cystic fibrosis [Unknown]
  - Infective pulmonary exacerbation of cystic fibrosis [Recovered/Resolved]
  - Platelet count decreased [Unknown]
  - Splenomegaly [Unknown]
  - Infective pulmonary exacerbation of cystic fibrosis [Recovering/Resolving]
  - Hepatic mass [Unknown]
  - Obstructive airways disorder [Unknown]
  - Cystic fibrosis related diabetes [Not Recovered/Not Resolved]
  - Pulmonary function test decreased [Unknown]
  - Infective pulmonary exacerbation of cystic fibrosis [Recovered/Resolved with Sequelae]
  - Hepatic cirrhosis [Unknown]
  - Portal hypertension [Unknown]
  - Pancreatic atrophy [Unknown]
  - Gastrointestinal disorder [Unknown]

NARRATIVE: CASE EVENT DATE: 20170527
